FAERS Safety Report 7775336-7 (Version None)
Quarter: 2011Q3

REPORT INFORMATION
  Report Type: 
  Country: None (occurrence: None)
  Receive Date: 20110921
  Receipt Date: 20110915
  Transmission Date: 20111222
  Serious: Yes (Hospitalization)
  Sender: FDA-Public Use
  Company Number: 1000023978

PATIENT
  Age: 74 Year
  Sex: Male

DRUGS (10)
  1. FLOVENT [Concomitant]
  2. CALCIUM CARBONATE [Concomitant]
  3. MUCINEX [Concomitant]
  4. LASIX [Concomitant]
  5. ASPIRIN [Concomitant]
  6. ADVAIR HFA [Concomitant]
  7. POTASSIUM CHLORIDE [Concomitant]
  8. PREDNISONE [Concomitant]
  9. DUONEB [Concomitant]
  10. DALIRESP (ROFLUMILAST) (500 MICROGRAM,TABLETS) [Suspect]
     Indication: CHRONIC OBSTRUCTIVE PULMONARY DISEASE
     Dosage: 500 MCG (500 MCG, 1 IN 1 D) ORAL
     Route: 048
     Dates: start: 20110829, end: 20110912

REACTIONS (3)
  - FACIAL BONES FRACTURE [None]
  - ATRIAL FIBRILLATION [None]
  - FALL [None]
